FAERS Safety Report 7583719-3 (Version None)
Quarter: 2011Q2

REPORT INFORMATION
  Report Type: 
  Country: None (occurrence: None)
  Receive Date: 20110630
  Receipt Date: 20110621
  Transmission Date: 20111010
  Serious: Yes (Death)
  Sender: FDA-Public Use
  Company Number: B0729330A

PATIENT
  Age: 47 Year
  Sex: Male

DRUGS (4)
  1. LAMIVUDINE [Suspect]
     Indication: HIV INFECTION
     Route: 065
  2. SORAFENIB [Suspect]
     Dosage: 800MG PER DAY
     Route: 065
  3. ATAZANAVIR [Suspect]
     Indication: HIV INFECTION
     Route: 065
  4. RITONAVIR [Suspect]
     Indication: HIV INFECTION
     Route: 065

REACTIONS (7)
  - DIARRHOEA [None]
  - TUMOUR RUPTURE [None]
  - NAUSEA [None]
  - ASTHENIA [None]
  - DRUG INTERACTION [None]
  - DECREASED APPETITE [None]
  - ABDOMINAL PAIN [None]
